FAERS Safety Report 6028393 (Version 2)
Quarter: 2013Q3

REPORT INFORMATION
  Report Type: Spontaneous
  Country: SE (occurrence: None)
  Receive Date: 20060405
  Receipt Date: 20130823
  Transmission Date: 20140515
  Serious: Yes (Other)
  Sender: FDA-Public Use
  Company Number: 2006US-01862

PATIENT
  Age: 69 Year
  Sex: Female

DRUGS (3)
  1. ROACCUTAN [Suspect]
     Indication: ADJUVANT THERAPY
  2. IODINE-131 (RADIODINE) UNKNOWN [Concomitant]
  3. THYROTROPIN ALFA (THYROTROPIN ALFA) [Concomitant]

REACTIONS (7)
  - Eye disorder [None]
  - Exophthalmos [None]
  - Eyelid disorder [None]
  - Photophobia [None]
  - Conjunctival oedema [None]
  - Hypothyroidism [None]
  - Diplopia [None]
